FAERS Safety Report 5465530-2 (Version None)
Quarter: 2007Q3

REPORT INFORMATION
  Report Type: 
  Country: None (occurrence: None)
  Receive Date: 20070924
  Receipt Date: 19971008
  Transmission Date: 20080115
  Serious: Yes (Death)
  Sender: FDA-Public Use
  Company Number: FR-PFIZER INC-2006119684

PATIENT
  Sex: Female

DRUGS (3)
  1. IRINOTECAN HCL [Suspect]
     Indication: COLORECTAL CANCER METASTATIC
     Dosage: DAILY DOSE:180MG/M*2-FREQ:EVERY 2 WEEKS
     Route: 042
     Dates: start: 19971007, end: 19971007
  2. FLUOROURACIL [Suspect]
     Indication: COLORECTAL CANCER METASTATIC
     Dosage: DAILY DOSE:600MG/M*2-FREQ:EVERY 2 WEEKS
     Route: 042
     Dates: start: 19971007, end: 19971008
  3. FOLINIC ACID [Suspect]
     Indication: COLORECTAL CANCER METASTATIC
     Dosage: DAILY DOSE:200MG/M*2-FREQ:EVERY 2 WEEKS
     Route: 042
     Dates: start: 19971007, end: 19971007

REACTIONS (1)
  - RESPIRATORY FAILURE [None]
